FAERS Safety Report 7891176-2 (Version None)
Quarter: 2011Q4

REPORT INFORMATION
  Report Type: 
  Country: None (occurrence: None)
  Receive Date: 20111103
  Receipt Date: 20110801
  Transmission Date: 20120403
  Serious: No
  Sender: FDA-Public Use
  Company Number: US-AMGEN-USASP2011031411

PATIENT
  Age: 87 Year
  Sex: Female

DRUGS (2)
  1. ENBREL [Suspect]
     Indication: RHEUMATOID ARTHRITIS
     Dates: start: 20050901
  2. TREXALL [Concomitant]

REACTIONS (8)
  - WEIGHT BEARING DIFFICULTY [None]
  - CONJUNCTIVITIS INFECTIVE [None]
  - CYSTITIS [None]
  - INJECTION SITE PAIN [None]
  - REITER'S SYNDROME [None]
  - OEDEMA PERIPHERAL [None]
  - RHEUMATOID ARTHRITIS [None]
  - ARTHRALGIA [None]
